FAERS Safety Report 10267579 (Version 1)
Quarter: 2014Q2

REPORT INFORMATION
  Report Type: Spontaneous
  Country: US (occurrence: US)
  Receive Date: 20140630
  Receipt Date: 20140630
  Transmission Date: 20141212
  Serious: No
  Sender: FDA-Public Use
  Company Number: US-PFIZER INC-2014180330

PATIENT
  Age: 83 Year
  Sex: Female
  Weight: 65.76 kg

DRUGS (2)
  1. LYRICA [Suspect]
     Indication: RESTLESS LEGS SYNDROME
     Dosage: 150 MG, DAILY
     Dates: start: 20140523
  2. LISINOPRIL [Concomitant]
     Dosage: 20 MG, DAILY

REACTIONS (1)
  - Vision blurred [Unknown]
